FAERS Safety Report 6738844-3 (Version None)
Quarter: 2010Q2

REPORT INFORMATION
  Report Type: 
  Country: None (occurrence: None)
  Receive Date: 20100520
  Receipt Date: 20100514
  Transmission Date: 20101027
  Serious: Yes (Other)
  Sender: FDA-Public Use
  Company Number: 2009SP028257

PATIENT
  Age: 44 Year
  Sex: Male

DRUGS (1)
  1. TEMODAL [Suspect]
     Indication: ANAPLASTIC ASTROCYTOMA
     Dosage: 150 MG/M2; PO
     Route: 048
     Dates: start: 20090706

REACTIONS (2)
  - APHASIA [None]
  - HEMIPLEGIA [None]
